FAERS Safety Report 4602931-6 (Version None)
Quarter: 2005Q1

REPORT INFORMATION
  Report Type: 
  Country: None (occurrence: None)
  Receive Date: 20050307
  Receipt Date: 20050221
  Transmission Date: 20050727
  Serious: Yes (Hospitalization, Other)
  Sender: FDA-Public Use
  Company Number: MAG-2005-0000340

PATIENT
  Age: 55 Year
  Sex: Male

DRUGS (1)
  1. MORPHINE SULFATE [Suspect]
     Indication: CANCER PAIN
     Dosage: UNK
     Route: 065

REACTIONS (6)
  - CHEST PAIN [None]
  - CONDITION AGGRAVATED [None]
  - HEPATIC FUNCTION ABNORMAL [None]
  - MULTIPLE MYELOMA [None]
  - OSTEOLYSIS [None]
  - STEM CELL TRANSPLANT [None]
